FAERS Safety Report 5975856-1 (Version None)
Quarter: 2008Q4

REPORT INFORMATION
  Report Type: 
  Country: None (occurrence: None)
  Receive Date: 20081202
  Receipt Date: 20081124
  Transmission Date: 20090506
  Serious: Yes (Hospitalization)
  Sender: FDA-Public Use
  Company Number: A0758441A

PATIENT
  Age: 45 Year
  Sex: Female
  Weight: 64 kg

DRUGS (6)
  1. ZOFRAN [Suspect]
     Indication: DRUG USE FOR UNKNOWN INDICATION
     Dosage: 4MG SINGLE DOSE
     Route: 042
  2. FENTANYL-100 [Concomitant]
  3. LIDOCAINE [Concomitant]
  4. NITROUS OXIDE [Concomitant]
  5. PROPOFOL [Concomitant]
  6. SEVOFLURANE [Concomitant]

REACTIONS (3)
  - DYSTONIA [None]
  - MUSCLE SPASMS [None]
  - URINARY RETENTION [None]
